FAERS Safety Report 24769867 (Version 1)
Quarter: 2024Q4

REPORT INFORMATION
  Report Type: Spontaneous
  Country: US (occurrence: US)
  Receive Date: 20241224
  Receipt Date: 20241224
  Transmission Date: 20250115
  Serious: No
  Sender: NOVARTIS
  Company Number: US-002147023-NVSC2024US243250

PATIENT
  Sex: Female
  Weight: 69 kg

DRUGS (1)
  1. SCEMBLIX [Suspect]
     Active Substance: ASCIMINIB HYDROCHLORIDE
     Indication: Chronic myelomonocytic leukaemia
     Dosage: 20 MG, QD
     Route: 048

REACTIONS (1)
  - Blood pressure abnormal [Unknown]
